FAERS Safety Report 6160989-X (Version None)
Quarter: 2009Q2

REPORT INFORMATION
  Report Type: 
  Country: None (occurrence: None)
  Receive Date: 20090420
  Receipt Date: 20090327
  Transmission Date: 20091009
  Serious: Yes (Life-Threatening, Hospitalization)
  Sender: FDA-Public Use
  Company Number: DK-GENENTECH-280694

PATIENT
  Sex: Male

DRUGS (3)
  1. AVASTIN [Suspect]
     Indication: RECTAL CANCER
     Dosage: 300 MG, Q2W
     Route: 042
     Dates: start: 20090112, end: 20090223
  2. IRINOTECAN HCL [Suspect]
     Indication: RECTAL CANCER
     Dosage: 315 MG, Q2W
     Route: 042
     Dates: start: 20090112, end: 20090224
  3. FLUOROURACIL [Suspect]
     Indication: RECTAL CANCER
     Dosage: 1700 MG, Q2W
     Route: 065
     Dates: start: 20090112, end: 20090224

REACTIONS (5)
  - AORTIC ANEURYSM [None]
  - DIARRHOEA [None]
  - MUCOUS MEMBRANE DISORDER [None]
  - NAUSEA [None]
  - PROTEINURIA [None]
